FAERS Safety Report 5418698-8 (Version None)
Quarter: 2007Q3

REPORT INFORMATION
  Report Type: 
  Country: None (occurrence: None)
  Receive Date: 20070817
  Receipt Date: 20070807
  Transmission Date: 20080115
  Serious: Yes (Hospitalization)
  Sender: FDA-Public Use
  Company Number: AU-PFIZER INC-2007065707

PATIENT
  Age: 23 Year
  Sex: Male

DRUGS (3)
  1. CLOZAPINE [Suspect]
  2. LITHIUM CARBONATE [Suspect]
  3. FLUOXETINE [Suspect]

REACTIONS (2)
  - C-REACTIVE PROTEIN INCREASED [None]
  - MYOCARDITIS [None]
